FAERS Safety Report 24195679 (Version 1)
Quarter: 2024Q3

REPORT INFORMATION
  Report Type: Spontaneous
  Country: US (occurrence: None)
  Receive Date: 20240809
  Receipt Date: 20240809
  Transmission Date: 20241017
  Serious: No
  Sender: Public
  Company Number: None

PATIENT
  Age: 53 Year
  Sex: Female
  Weight: 65.25 kg

DRUGS (9)
  1. QELBREE [Suspect]
     Active Substance: VILOXAZINE HYDROCHLORIDE
     Indication: Attention deficit hyperactivity disorder
     Dosage: OTHER QUANTITY : 1 CAPSULE(S);?
     Route: 048
     Dates: start: 20240801, end: 20240808
  2. LAMICTAL [Concomitant]
  3. Levodythyroxin [Concomitant]
  4. HYDROXYZINE [Concomitant]
  5. Norco5 [Concomitant]
  6. MAGNESIUM [Concomitant]
  7. VITAMIN D3 [Concomitant]
     Active Substance: CHOLECALCIFEROL
  8. HERBALS\TURMERIC [Concomitant]
     Active Substance: HERBALS\TURMERIC
  9. TYLENOL [Concomitant]

REACTIONS (5)
  - Initial insomnia [None]
  - Insomnia [None]
  - Depressed mood [None]
  - Heart rate decreased [None]
  - Apathy [None]
